FAERS Safety Report 4466105-4 (Version None)
Quarter: 2004Q3

REPORT INFORMATION
  Report Type: 
  Country: None (occurrence: None)
  Receive Date: 20040930
  Receipt Date: 20040917
  Transmission Date: 20050211
  Serious: Yes (Life-Threatening, Hospitalization)
  Sender: FDA-Public Use
  Company Number: 2004234146DE

PATIENT
  Age: 66 Year
  Sex: Female

DRUGS (1)
  1. BEXTRA [Suspect]
     Dosage: ORAL
     Route: 048
     Dates: start: 20040905

REACTIONS (10)
  - BLISTER [None]
  - BLOOD PRESSURE DECREASED [None]
  - CARDIOVASCULAR DISORDER [None]
  - DRY MOUTH [None]
  - DYSPNOEA [None]
  - HOARSENESS [None]
  - LARYNGEAL OEDEMA [None]
  - MUSCLE CRAMP [None]
  - SKIN DESQUAMATION [None]
  - VOMITING [None]
